FAERS Safety Report 7936052-1 (Version None)
Quarter: 2011Q4

REPORT INFORMATION
  Report Type: 
  Country: None (occurrence: None)
  Receive Date: 20111121
  Receipt Date: 20111103
  Transmission Date: 20120403
  Serious: Yes (Hospitalization, Other)
  Sender: FDA-Public Use
  Company Number: 2011MA016168

PATIENT
  Age: 17 Year

DRUGS (1)
  1. ALBUTEROL SULATE [Suspect]
     Indication: ASTHMA
     Dosage: INH
     Route: 055

REACTIONS (11)
  - ASTHMA [None]
  - HYPOKALAEMIA [None]
  - LACTIC ACIDOSIS [None]
  - TOXICITY TO VARIOUS AGENTS [None]
  - DRUG ABUSE [None]
  - ANION GAP INCREASED [None]
  - RENAL FAILURE [None]
  - SINUS TACHYCARDIA [None]
  - METABOLIC ACIDOSIS [None]
  - DIABETES MELLITUS [None]
  - OVERDOSE [None]
